FAERS Safety Report 12693171 (Version 2)
Quarter: 2016Q4

REPORT INFORMATION
  Report Type: Spontaneous
  Country: US (occurrence: US)
  Receive Date: 20160829
  Receipt Date: 20161028
  Transmission Date: 20170207
  Serious: Yes (Hospitalization)
  Sender: FDA-Public Use
  Company Number: US-ASTELLAS-2016US032907

PATIENT
  Sex: Female

DRUGS (1)
  1. TARCEVA [Suspect]
     Active Substance: ERLOTINIB HYDROCHLORIDE
     Indication: PRODUCT USED FOR UNKNOWN INDICATION
     Route: 048
     Dates: start: 20151231

REACTIONS (9)
  - Constipation [Unknown]
  - Vomiting [Unknown]
  - Asthenia [Unknown]
  - Cough [Unknown]
  - Pain [Unknown]
  - Dehydration [Unknown]
  - Diarrhoea [Unknown]
  - Alopecia [Unknown]
  - Pruritus [Unknown]
